FAERS Safety Report 4551077-4 (Version None)
Quarter: 2005Q1

REPORT INFORMATION
  Report Type: 
  Country: None (occurrence: None)
  Receive Date: 20050113
  Receipt Date: 20040405
  Transmission Date: 20050727
  Serious: No
  Sender: FDA-Public Use
  Company Number: US-BRISTOL-MYERS SQUIBB COMPANY-12551297

PATIENT
  Age: 82 Year
  Sex: Female
  Weight: 72 kg

DRUGS (7)
  1. IFOSFAMIDE [Suspect]
     Indication: UTERINE CANCER
     Route: 042
     Dates: start: 20040301
  2. MESNA [Concomitant]
     Indication: PREMEDICATION
     Route: 042
     Dates: start: 20040301
  3. TRAZODONE HCL [Concomitant]
  4. LASIX [Concomitant]
  5. IMDUR [Concomitant]
  6. MEGACE [Concomitant]
  7. CELEBREX [Concomitant]

REACTIONS (1)
  - HAEMATURIA [None]
